FAERS Safety Report 7973795-8 (Version None)
Quarter: 2011Q4

REPORT INFORMATION
  Report Type: 
  Country: None (occurrence: None)
  Receive Date: 20111213
  Receipt Date: 20111207
  Transmission Date: 20120403
  Serious: Yes (Hospitalization)
  Sender: FDA-Public Use
  Company Number: PHHO2011DE019958

PATIENT
  Sex: Female
  Weight: 68 kg

DRUGS (10)
  1. AFINITOR [Suspect]
     Dosage: CODE NOT BROKEN
     Route: 048
     Dates: start: 20111205
  2. CLOTRIMAZOLE [Concomitant]
     Indication: ECZEMA
     Dosage: 1 G, ON DEMAND
     Route: 062
     Dates: start: 20110305
  3. BLINDED NO TREATMENT RECEIVED [Suspect]
     Indication: TUBEROUS SCLEROSIS
     Dosage: CODE NOT BROKEN
     Route: 048
     Dates: start: 20090508, end: 20110719
  4. OXCARBAZEPINE [Concomitant]
     Indication: EPILEPSY
     Dosage: 600 MG, BID
     Route: 048
     Dates: start: 20090101, end: 20110728
  5. BLINDED PLACEBO [Suspect]
     Indication: TUBEROUS SCLEROSIS
     Dosage: CODE NOT BROKEN
     Route: 048
     Dates: start: 20090508, end: 20110719
  6. BLINDED NO TREATMENT RECEIVED [Suspect]
     Dosage: CODE NOT BROKEN
     Route: 048
     Dates: start: 20111205
  7. BLINDED PLACEBO [Suspect]
     Dosage: CODE NOT BROKEN
     Route: 048
     Dates: start: 20111205
  8. AFINITOR [Suspect]
     Indication: TUBEROUS SCLEROSIS
     Dosage: CODE NOT BROKEN
     Route: 048
     Dates: start: 20090508, end: 20110719
  9. LAMOTRIGINE [Concomitant]
     Indication: EPILEPSY
     Dosage: 400 MG, BID
     Route: 048
     Dates: start: 20090101, end: 20110728
  10. CLOBETASOL [Concomitant]
     Indication: ECZEMA

REACTIONS (7)
  - HAEMORRHAGE [None]
  - ABDOMINAL COMPARTMENT SYNDROME [None]
  - HAEMODYNAMIC INSTABILITY [None]
  - CARDIAC FAILURE CONGESTIVE [None]
  - INFECTIOUS PERITONITIS [None]
  - ILEAL PERFORATION [None]
  - SEPSIS [None]
